FAERS Safety Report 5258373-6 (Version None)
Quarter: 2007Q1

REPORT INFORMATION
  Report Type: 
  Country: None (occurrence: None)
  Receive Date: 20070306
  Receipt Date: 20070306
  Transmission Date: 20070707
  Serious: Yes (Life-Threatening, Hospitalization, Other)
  Sender: FDA-Public Use
  Company Number: None

PATIENT
  Sex: Male
  Weight: 83.9154 kg

DRUGS (8)
  1. HUMIRA [Suspect]
     Indication: RHEUMATOID ARTHRITIS
     Dosage: INJ 2WK LEG
     Dates: start: 20060921
  2. HUMIRA [Suspect]
     Indication: RHEUMATOID ARTHRITIS
     Dosage: INJ 2WK LEG
     Dates: start: 20061005
  3. HUMIRA [Suspect]
     Indication: RHEUMATOID ARTHRITIS
     Dosage: INJ 2WK LEG
     Dates: start: 20061019
  4. HUMIRA [Suspect]
     Indication: RHEUMATOID ARTHRITIS
     Dosage: INJ 2WK LEG
     Dates: start: 20061102
  5. HUMIRA [Suspect]
     Indication: RHEUMATOID ARTHRITIS
     Dosage: INJ 2WK LEG
     Dates: start: 20061116
  6. PREDNISONE [Concomitant]
  7. ALPHAGAN [Concomitant]
  8. ATENOLOL [Concomitant]

REACTIONS (2)
  - ASTHENIA [None]
  - CHILLS [None]
